FAERS Safety Report 5135672-X (Version None)
Quarter: 2006Q4

REPORT INFORMATION
  Report Type: 
  Country: None (occurrence: None)
  Receive Date: 20061026
  Receipt Date: 20061002
  Transmission Date: 20070319
  Serious: Yes (Other)
  Sender: FDA-Public Use
  Company Number: 2006UW19165

PATIENT
  Age: 46 Year
  Sex: Female

DRUGS (3)
  1. SYMBICORT TURBUHALER ^DRACO^ [Suspect]
     Indication: ASTHMA
     Dosage: 160 / 4.5
     Route: 055
  2. PREDNISONE TAB [Concomitant]
     Indication: ASTHMA
     Dosage: PATIENT REPORTS TAKING WHEN ASTHMA ACTING UP
     Route: 048
  3. BECLOMETHASONE DIPROPIONATE [Concomitant]
     Indication: ASTHMA
     Dates: start: 19960101

REACTIONS (1)
  - CUSHING'S SYNDROME [None]
